FAERS Safety Report 20069150 (Version 1)
Quarter: 2021Q4

REPORT INFORMATION
  Report Type: Spontaneous
  Country: US (occurrence: US)
  Receive Date: 20211115
  Receipt Date: 20211115
  Transmission Date: 20220304
  Serious: No
  Sender: FDA-Public Use
  Company Number: US-TEVA-2021-US-1974803

PATIENT
  Age: 32 Year
  Sex: Female

DRUGS (2)
  1. ALPRAZOLAM [Suspect]
     Active Substance: ALPRAZOLAM
     Dosage: TAKING FOR 12 YEARS
     Route: 065
  2. ALPRAZOLAM [Suspect]
     Active Substance: ALPRAZOLAM
     Route: 065
     Dates: start: 20211018

REACTIONS (5)
  - Drug ineffective [Unknown]
  - Palpitations [Unknown]
  - Headache [Unknown]
  - Migraine [Unknown]
  - Anxiety [Unknown]

NARRATIVE: CASE EVENT DATE: 20211018
